FAERS Safety Report 10599536 (Version 2)
Quarter: 2015Q1

REPORT INFORMATION
  Report Type: Report from Study
  Country: US (occurrence: US)
  Receive Date: 20141121
  Receipt Date: 20150105
  Transmission Date: 20150720
  Serious: Yes (Hospitalization)
  Sender: FDA-Public Use
  Company Number: US-009507513-1411USA008107

PATIENT
  Age: 71 Year

DRUGS (3)
  1. VELCADE [Suspect]
     Active Substance: BORTEZOMIB
     Indication: PLASMA CELL MYELOMA
     Dosage: 2.2 MG, 2 X WEEKLY DAYS 1 AND 4 EVERY 7 DAYS, THEN 1 WEEK OFF EVERY 14 DAYS
     Route: 042
     Dates: start: 20110919, end: 20120517
  2. DECADRON [Suspect]
     Active Substance: DEXAMETHASONE
     Indication: PLASMA CELL MYELOMA
     Dosage: 20 MG, QW
     Route: 042
     Dates: start: 20110919, end: 20120517
  3. BORTEZOMIB [Suspect]
     Active Substance: BORTEZOMIB
     Indication: PLASMA CELL MYELOMA
     Dosage: STRENGTH: 3.5 MG/VIAL; DOSE: 2.2 MG ON DAY 1 + 4 WEEKLY X 2
     Route: 042
     Dates: start: 20110919, end: 20120517

REACTIONS (12)
  - Coagulopathy [Recovered/Resolved]
  - Chills [Recovered/Resolved]
  - Lower gastrointestinal haemorrhage [Recovered/Resolved]
  - Neutropenia [Recovered/Resolved]
  - Fatigue [Recovered/Resolved]
  - Pyrexia [Recovered/Resolved]
  - Diarrhoea [Recovered/Resolved]
  - Leukopenia [Recovered/Resolved]
  - Weight decreased [Recovered/Resolved]
  - Haematochezia [Recovered/Resolved]
  - Anaemia [Recovered/Resolved]
  - Thrombocytopenia [Recovered/Resolved]

NARRATIVE: CASE EVENT DATE: 2011
